FAERS Safety Report 20798704 (Version 1)
Quarter: 2022Q2

REPORT INFORMATION
  Report Type: Spontaneous
  Country: JP (occurrence: JP)
  Receive Date: 20220507
  Receipt Date: 20220507
  Transmission Date: 20220721
  Serious: Yes (Hospitalization)
  Sender: FDA-Public Use
  Company Number: JP-CHUGAI-2022009771

PATIENT
  Age: 78 Year
  Sex: Male
  Weight: 73.7 kg

DRUGS (4)
  1. TECENTRIQ [Suspect]
     Active Substance: ATEZOLIZUMAB
     Indication: Hepatocellular carcinoma
     Dosage: LAST DOSE ADMINISTERED ON 03/MAR/2022
     Route: 041
     Dates: start: 20220303
  2. AVASTIN [Suspect]
     Active Substance: BEVACIZUMAB
     Indication: Hepatocellular carcinoma
     Dosage: LAST DOSE ADMINISTERED ON 03/MAR/2022
     Route: 041
     Dates: start: 20220303, end: 20220303
  3. VEMLIDY [Concomitant]
     Active Substance: TENOFOVIR ALAFENAMIDE FUMARATE
     Dosage: UNK
     Route: 065
     Dates: start: 20210901
  4. XARELTO [Concomitant]
     Active Substance: RIVAROXABAN

REACTIONS (3)
  - Dizziness [Recovering/Resolving]
  - Haemophagocytic lymphohistiocytosis [Recovered/Resolved]
  - Hypertension [Unknown]

NARRATIVE: CASE EVENT DATE: 20220311
